FAERS Safety Report 20918503 (Version 1)
Quarter: 2022Q2

REPORT INFORMATION
  Report Type: Spontaneous
  Country: US (occurrence: None)
  Receive Date: 20220603
  Receipt Date: 20220603
  Transmission Date: 20220721
  Serious: No
  Sender: FDA-Public Use
  Company Number: None

PATIENT
  Age: 60 Year
  Sex: Female
  Weight: 70.74 kg

DRUGS (11)
  1. PAXLOVID [Suspect]
     Active Substance: NIRMATRELVIR\RITONAVIR
     Indication: COVID-19
     Dosage: FREQUENCY : TWICE A DAY;, 1 TABLET?
     Route: 048
     Dates: start: 20220601, end: 20220602
  2. Cosyntex [Concomitant]
  3. LYRICA [Concomitant]
     Active Substance: PREGABALIN
  4. NORTRIPTYLINE [Concomitant]
     Active Substance: NORTRIPTYLINE
  5. DICLOFENAC [Concomitant]
     Active Substance: DICLOFENAC
  6. LINZESS [Concomitant]
     Active Substance: LINACLOTIDE
  7. FAMOTIDINE [Concomitant]
     Active Substance: FAMOTIDINE
  8. LEFLUNOMIDE [Concomitant]
     Active Substance: LEFLUNOMIDE
  9. CALCIUM\VITAMIN D [Concomitant]
     Active Substance: CALCIUM\VITAMIN D
  10. MELATONIN [Concomitant]
     Active Substance: MELATONIN
  11. PAXLOVID [Suspect]
     Active Substance: NIRMATRELVIR\RITONAVIR
     Indication: COVID-19
     Dosage: FREQUENCY : TWICE A DAY;, 1 TABLET?
     Route: 048
     Dates: start: 20220601, end: 20220602

REACTIONS (10)
  - Disorientation [None]
  - Pain [None]
  - Nausea [None]
  - Photophobia [None]
  - Hyperacusis [None]
  - Decreased appetite [None]
  - Fluid intake reduced [None]
  - Migraine [None]
  - Diarrhoea [None]
  - Vomiting [None]

NARRATIVE: CASE EVENT DATE: 20220601
